FAERS Safety Report 7457959-8 (Version None)
Quarter: 2011Q2

REPORT INFORMATION
  Report Type: 
  Country: None (occurrence: None)
  Receive Date: 20110504
  Receipt Date: 20110502
  Transmission Date: 20111010
  Serious: No
  Sender: FDA-Public Use
  Company Number: US-TEVA-279376USA

PATIENT
  Sex: Female
  Weight: 52.21 kg

DRUGS (1)
  1. PROAIR HFA [Suspect]
     Route: 055
     Dates: start: 20100901

REACTIONS (1)
  - PALPITATIONS [None]
